FAERS Safety Report 9052509 (Version 1)
Quarter: 2013Q1

REPORT INFORMATION
  Report Type: Spontaneous
  Country: PH (occurrence: PH)
  Receive Date: 20130207
  Receipt Date: 20130207
  Transmission Date: 20140127
  Serious: Yes (Hospitalization, Other)
  Sender: FDA-Public Use
  Company Number: PHHY2013PH010625

PATIENT
  Sex: Female

DRUGS (3)
  1. AFINITOR [Suspect]
     Indication: BREAST CANCER
     Dosage: 10 MG, QD
     Route: 048
     Dates: start: 20130110
  2. FULVESTRANT [Suspect]
     Indication: BREAST CANCER
     Dosage: UNK
  3. DENOSUMAB [Suspect]

REACTIONS (8)
  - Renal failure [Recovering/Resolving]
  - Blood creatinine increased [Unknown]
  - Disorientation [Unknown]
  - Pollakiuria [Unknown]
  - Eating disorder [Unknown]
  - Hepatic enzyme increased [Unknown]
  - Nausea [Unknown]
  - Vomiting [Unknown]
